FAERS Safety Report 8431368-7 (Version None)
Quarter: 2012Q2

REPORT INFORMATION
  Report Type: 
  Country: None (occurrence: None)
  Receive Date: 20120613
  Receipt Date: 20120607
  Transmission Date: 20120825
  Serious: Yes (Hospitalization)
  Sender: FDA-Public Use
  Company Number: US-GE HEALTHCARE MEDICAL DIAGNOSTICS-OSCN-PR-1205S-0089

PATIENT
  Age: 35 Year
  Sex: Female
  Weight: 79.45 kg

DRUGS (3)
  1. OMNISCAN [Suspect]
     Indication: MIGRAINE
     Route: 042
     Dates: start: 20120509, end: 20120509
  2. OMNISCAN [Suspect]
     Indication: MULTIPLE SCLEROSIS
  3. OMNISCAN [Suspect]
     Indication: DIAGNOSTIC PROCEDURE

REACTIONS (3)
  - DYSPNOEA [None]
  - PAIN [None]
  - ANXIETY [None]
